FAERS Safety Report 9170967 (Version 2)
Quarter: 2013Q1

REPORT INFORMATION
  Report Type: Spontaneous
  Country: US (occurrence: US)
  Receive Date: 20130319
  Receipt Date: 20130325
  Transmission Date: 20140127
  Serious: No
  Sender: FDA-Public Use
  Company Number: US-VERTEX PHARMACEUTICALS INC.-2013-003714

PATIENT
  Age: 49 Year
  Sex: Male
  Weight: 77 kg

DRUGS (10)
  1. INCIVEK [Suspect]
     Indication: HEPATITIS C
     Dosage: 750 MG, TID
     Route: 048
     Dates: start: 20130316, end: 20130317
  2. RIBAVIRIN [Suspect]
     Indication: HEPATITIS C
     Dosage: 600 MG, BID
     Dates: start: 20130316, end: 20130317
  3. PEGASYS [Suspect]
     Indication: HEPATITIS C
     Dosage: 180 ?G,QW
     Route: 058
     Dates: start: 20130316, end: 20130317
  4. VITAMIN E [Concomitant]
     Dosage: 1000 IU, UNK
  5. FISH OIL [Concomitant]
  6. VITAMIN C [Concomitant]
     Dosage: 500 MG, UNK
  7. VITAMIN B12 [Concomitant]
     Dosage: 1000 CR
  8. MULTIVITAMIN [Concomitant]
  9. ALPHA LIPOIC ACID [Concomitant]
     Dosage: 100 MG, UNK
  10. MILK THISTLE [Concomitant]

REACTIONS (7)
  - Back pain [Unknown]
  - Pain [Not Recovered/Not Resolved]
  - Discomfort [Not Recovered/Not Resolved]
  - Agitation [Unknown]
  - Feeling abnormal [Unknown]
  - Decreased appetite [Unknown]
  - Asthenia [Not Recovered/Not Resolved]
